FAERS Safety Report 10505754 (Version 13)
Quarter: 2015Q2

REPORT INFORMATION
  Report Type: Spontaneous
  Country: US (occurrence: US)
  Receive Date: 20141008
  Receipt Date: 20150401
  Transmission Date: 20150821
  Serious: Yes (Hospitalization)
  Sender: FDA-Public Use
  Company Number: US-ACTELION-A-US2014-106107

PATIENT
  Age: 56 Year
  Sex: Male

DRUGS (5)
  1. VELETRI [Suspect]
     Active Substance: EPOPROSTENOL
     Dosage: 25 NG/KG, PER MIN
     Route: 042
  2. VELETRI [Suspect]
     Active Substance: EPOPROSTENOL
     Dosage: 30 NG/KG, PER MIN
     Route: 042
  3. VELETRI [Suspect]
     Active Substance: EPOPROSTENOL
     Indication: PULMONARY ARTERIAL HYPERTENSION
     Dosage: 22 NG/KG, PER MIN
     Route: 042
     Dates: start: 20140904
  4. ADCIRCA [Concomitant]
     Active Substance: TADALAFIL
  5. FLOLAN [Concomitant]
     Active Substance: EPOPROSTENOL SODIUM

REACTIONS (18)
  - Blood creatinine increased [Unknown]
  - Swelling [Unknown]
  - Feeling abnormal [Unknown]
  - Abdominal distension [Unknown]
  - Condition aggravated [Unknown]
  - Dialysis [Unknown]
  - Renal disorder [Unknown]
  - Renal function test abnormal [Unknown]
  - Fatigue [Unknown]
  - Fluid retention [Unknown]
  - Peripheral swelling [Unknown]
  - Oedema [Unknown]
  - Diarrhoea [Unknown]
  - Cardiac failure [Recovering/Resolving]
  - Ascites [Unknown]
  - Dyspnoea [Unknown]
  - Decreased appetite [Unknown]
  - Nausea [Unknown]

NARRATIVE: CASE EVENT DATE: 20140926
